FAERS Safety Report 10313779 (Version 3)
Quarter: 2014Q4

REPORT INFORMATION
  Report Type: Spontaneous
  Country: DE (occurrence: DE)
  Receive Date: 20140718
  Receipt Date: 20141212
  Transmission Date: 20150528
  Serious: Yes (Hospitalization)
  Sender: FDA-Public Use
  Company Number: DE-SA-2014SA093634

PATIENT
  Age: 43 Year
  Sex: Female
  Weight: 54 kg

DRUGS (8)
  1. LEMTRADA [Suspect]
     Active Substance: ALEMTUZUMAB
     Indication: MULTIPLE SCLEROSIS
     Route: 042
     Dates: start: 20140623, end: 20140627
  2. METHYLPREDNISOLONE. [Concomitant]
     Active Substance: METHYLPREDNISOLONE
     Route: 048
     Dates: start: 20140623, end: 20140627
  3. RANITIDINE [Concomitant]
     Active Substance: RANITIDINE\RANITIDINE HYDROCHLORIDE
     Route: 048
     Dates: start: 20140623
  4. ACICLOVIR [Concomitant]
     Active Substance: ACYCLOVIR
     Route: 048
     Dates: start: 20140623
  5. FENISTIL [Concomitant]
     Active Substance: DIMETHINDENE
     Route: 048
     Dates: start: 20140623, end: 201407
  6. METHYLPREDNISOLONE. [Concomitant]
     Active Substance: METHYLPREDNISOLONE
     Dosage: DOSE: {1G (TAPERING OFF)
     Route: 048
     Dates: start: 20140628, end: 201407
  7. IBUPROFEN. [Concomitant]
     Active Substance: IBUPROFEN
     Route: 048
     Dates: start: 20140623, end: 201407
  8. MONO-EMBOLEX [Concomitant]
     Active Substance: CERTOPARIN SODIUM
     Route: 058
     Dates: start: 20140626

REACTIONS (3)
  - Meningitis listeria [Recovering/Resolving]
  - Leukopenia [Unknown]
  - Relapsing-remitting multiple sclerosis [Recovering/Resolving]

NARRATIVE: CASE EVENT DATE: 201407
